APPROVED DRUG PRODUCT: SULTEN-10
Active Ingredient: SULFACETAMIDE SODIUM
Strength: 10%
Dosage Form/Route: SOLUTION/DROPS;OPHTHALMIC
Application: A087818 | Product #001
Applicant: BAUSCH AND LOMB INC
Approved: Feb 3, 1983 | RLD: No | RS: No | Type: DISCN